FAERS Safety Report 5913942-2 (Version None)
Quarter: 2008Q4

REPORT INFORMATION
  Report Type: 
  Country: None (occurrence: None)
  Receive Date: 20081009
  Receipt Date: 20081006
  Transmission Date: 20090506
  Serious: Yes (Life-Threatening, Hospitalization)
  Sender: FDA-Public Use
  Company Number: GB-MERCK-0810GBR00034

PATIENT
  Age: 72 Year
  Sex: Male

DRUGS (16)
  1. ZOCOR [Suspect]
     Indication: HYPERCHOLESTEROLAEMIA
     Route: 048
     Dates: start: 20080301
  2. CANDESARTAN CILEXETIL [Suspect]
     Indication: HYPERTENSION
     Route: 048
     Dates: start: 20051101
  3. AMOXICILLIN AND CLAVULANATE POTASSIUM [Suspect]
     Indication: TOOTH ABSCESS
     Route: 048
     Dates: start: 20080928, end: 20080930
  4. ERYTHROMYCIN [Suspect]
     Indication: TOOTH ABSCESS
     Route: 048
     Dates: start: 20080925, end: 20080928
  5. LISINOPRIL [Suspect]
     Indication: HYPERTENSION
     Route: 048
     Dates: start: 20041201, end: 20080930
  6. DILTIAZEM HYDROCHLORIDE [Concomitant]
     Route: 065
  7. ALLOPURINOL [Concomitant]
     Route: 065
  8. DIGOXIN [Concomitant]
     Route: 065
  9. EZETIMIBE [Concomitant]
     Route: 065
  10. FUROSEMIDE [Concomitant]
     Route: 065
  11. GLIMEPIRIDE [Concomitant]
     Route: 065
  12. LEVOTHYROXINE SODIUM [Concomitant]
     Route: 065
  13. METFORMIN [Concomitant]
     Route: 065
  14. NEBIVOLOL [Concomitant]
     Route: 065
  15. PIOGLITAZONE HYDROCHLORIDE [Concomitant]
     Route: 065
  16. WARFARIN SODIUM [Concomitant]
     Route: 065

REACTIONS (5)
  - ANGIOEDEMA [None]
  - DYSPHONIA [None]
  - OROPHARYNGEAL PAIN [None]
  - RESPIRATORY DISTRESS [None]
  - SWOLLEN TONGUE [None]
